FAERS Safety Report 25159640 (Version 2)
Quarter: 2025Q2

REPORT INFORMATION
  Report Type: Spontaneous
  Country: JP (occurrence: JP)
  Receive Date: 20250404
  Receipt Date: 20250409
  Transmission Date: 20250717
  Serious: Yes (Life-Threatening, Hospitalization)
  Sender: MACLEODS
  Company Number: JP-MLMSERVICE-20250317-PI447192-00118-1

PATIENT

DRUGS (6)
  1. DULOXETINE [Suspect]
     Active Substance: DULOXETINE
     Indication: Schizophrenia
     Route: 048
     Dates: start: 20230329
  2. DEXTROMETHORPHAN [Suspect]
     Active Substance: DEXTROMETHORPHAN
     Indication: Product used for unknown indication
     Route: 048
     Dates: start: 20230329
  3. TRIAZOLAM [Suspect]
     Active Substance: TRIAZOLAM
     Indication: Schizophrenia
     Route: 048
     Dates: start: 20230329
  4. ALPRAZOLAM [Suspect]
     Active Substance: ALPRAZOLAM
     Indication: Schizophrenia
     Route: 048
     Dates: start: 20230329
  5. RISPERIDONE [Suspect]
     Active Substance: RISPERIDONE
     Indication: Schizophrenia
     Route: 048
     Dates: start: 20230329
  6. BROTIZOLAM [Suspect]
     Active Substance: BROTIZOLAM
     Indication: Schizophrenia
     Route: 048
     Dates: start: 20230329

REACTIONS (11)
  - Metabolic acidosis [Unknown]
  - Coma [Recovered/Resolved]
  - Status epilepticus [Recovered/Resolved]
  - Quadriplegia [Recovered/Resolved]
  - Areflexia [Recovered/Resolved]
  - Hyperthermia [Recovered/Resolved]
  - Suicide attempt [Recovered/Resolved]
  - Toxicity to various agents [Recovered/Resolved]
  - Atelectasis [Recovered/Resolved]
  - Intentional overdose [Recovered/Resolved]
  - Drug interaction [Recovered/Resolved]

NARRATIVE: CASE EVENT DATE: 20230329
